FAERS Safety Report 9374885 (Version 2)
Quarter: 2013Q3

REPORT INFORMATION
  Report Type: Spontaneous
  Country: JP (occurrence: JP)
  Receive Date: 20130628
  Receipt Date: 20130718
  Transmission Date: 20140515
  Serious: Yes (Other)
  Sender: FDA-Public Use
  Company Number: JP-ELI_LILLY_AND_COMPANY-JP201306005254

PATIENT
  Age: 75 Year
  Sex: Female

DRUGS (4)
  1. ALIMTA [Suspect]
     Indication: LUNG ADENOCARCINOMA
     Route: 042
  2. RHEUMATREX [Concomitant]
  3. PANVITAN                           /00466101/ [Concomitant]
     Route: 065
  4. VITAMIN B12                        /00056201/ [Concomitant]
     Route: 065

REACTIONS (2)
  - Myocardial infarction [Unknown]
  - Renal impairment [Not Recovered/Not Resolved]
